FAERS Safety Report 7584604-3 (Version None)
Quarter: 2011Q2

REPORT INFORMATION
  Report Type: 
  Country: None (occurrence: None)
  Receive Date: 20110630
  Receipt Date: 20110622
  Transmission Date: 20111010
  Serious: Yes (Hospitalization)
  Sender: FDA-Public Use
  Company Number: US-US-EMD SERONO, INC.-7052689

PATIENT
  Sex: Female
  Weight: 74 kg

DRUGS (2)
  1. REBIF [Suspect]
     Indication: MULTIPLE SCLEROSIS
     Route: 058
     Dates: start: 20080424
  2. UNSPECIFIED MEDICATIONS [Concomitant]

REACTIONS (3)
  - PNEUMONIA [None]
  - INJECTION SITE PAIN [None]
  - HEPATIC STEATOSIS [None]
